FAERS Safety Report 4381909-4 (Version None)
Quarter: 2004Q2

REPORT INFORMATION
  Report Type: 
  Country: None (occurrence: None)
  Receive Date: 20040615
  Receipt Date: 20040601
  Transmission Date: 20050107
  Serious: Yes (Death)
  Sender: FDA-Public Use
  Company Number: 2004213284CZ

PATIENT
  Age: 51 Year
  Sex: Male

DRUGS (5)
  1. ADRIBLASTINA CS (DOXORUBICIN HYDROCHLORIDE) [Suspect]
     Indication: DIFFUSE LARGE B-CELL LYMPHOMA
     Dosage: THREE CYCLES
     Dates: start: 20040201, end: 20040317
  2. RITUXIMAB (RITUXIMAB) [Concomitant]
  3. CYCLOPHOSPHAMIDE [Concomitant]
  4. VINCRISTINE [Concomitant]
  5. PREDNISONE [Concomitant]

REACTIONS (6)
  - COMA HEPATIC [None]
  - DISEASE RECURRENCE [None]
  - FEBRILE NEUTROPENIA [None]
  - HEPATIC FAILURE [None]
  - HEPATITIS B [None]
  - HEPATITIS CHOLESTATIC [None]
